FAERS Safety Report 5533632-8 (Version None)
Quarter: 2007Q4

REPORT INFORMATION
  Report Type: 
  Country: None (occurrence: None)
  Receive Date: 20071204
  Receipt Date: 20071128
  Transmission Date: 20080405
  Serious: Yes (Other)
  Sender: FDA-Public Use
  Company Number: GB-WYE-G00697707

PATIENT
  Sex: Female

DRUGS (2)
  1. EFFEXOR XR [Suspect]
     Dosage: UNKNOWN
     Route: 048
  2. EFFEXOR XR [Suspect]
     Route: 048

REACTIONS (21)
  - DEHYDRATION [None]
  - DIZZINESS [None]
  - DRY EYE [None]
  - DRY MOUTH [None]
  - DYSARTHRIA [None]
  - DYSPEPSIA [None]
  - EPISTAXIS [None]
  - EYE PAIN [None]
  - EYE SWELLING [None]
  - FEELING OF BODY TEMPERATURE CHANGE [None]
  - HEARING IMPAIRED [None]
  - PALPITATIONS [None]
  - PROCTALGIA [None]
  - PRURITUS [None]
  - RECTAL HAEMORRHAGE [None]
  - TINNITUS [None]
  - URINE COLOUR ABNORMAL [None]
  - URINE ODOUR ABNORMAL [None]
  - VISUAL DISTURBANCE [None]
  - VULVA INJURY [None]
  - VULVOVAGINAL DRYNESS [None]
